FAERS Safety Report 4741402-3 (Version None)
Quarter: 2005Q3

REPORT INFORMATION
  Report Type: 
  Country: None (occurrence: None)
  Receive Date: 20050810
  Receipt Date: 20050802
  Transmission Date: 20060218
  Serious: Yes (Hospitalization)
  Sender: FDA-Public Use
  Company Number: BE-BRISTOL-MYERS SQUIBB COMPANY-13059936

PATIENT
  Age: 61 Year
  Sex: Male

DRUGS (5)
  1. LYSODREN [Suspect]
     Indication: ADRENOCORTICAL CARCINOMA
     Route: 048
     Dates: start: 20050224, end: 20050627
  2. IMODIUM [Concomitant]
     Dates: start: 20050316, end: 20050627
  3. DOMPERIDONE [Concomitant]
     Dates: start: 20050313, end: 20050627
  4. TRAMADOL HCL [Concomitant]
     Dates: start: 20050201, end: 20050601
  5. HYDROCORTISONE [Concomitant]

REACTIONS (1)
  - RENAL FAILURE ACUTE [None]
